FAERS Safety Report 4984077-0 (Version None)
Quarter: 2006Q1

REPORT INFORMATION
  Report Type: 
  Country: None (occurrence: None)
  Receive Date: 20060306
  Receipt Date: 20060111
  Transmission Date: 20060701
  Serious: No
  Sender: FDA-Public Use
  Company Number: 33576

PATIENT
  Age: 56 Year
  Sex: Female

DRUGS (7)
  1. NEVANAC [Suspect]
     Indication: PROPHYLAXIS
     Dosage: 1 GTT OU QID OPHT
     Route: 047
     Dates: start: 20051209, end: 20051209
  2. ZYMAR [Concomitant]
  3. PRED FORTE [Concomitant]
  4. CELLUVISC [Concomitant]
  5. CELEBREX [Concomitant]
  6. PREDNISONE TAB [Concomitant]
  7. REFRESH PLUS [Concomitant]

REACTIONS (2)
  - CORNEAL EPITHELIUM DEFECT [None]
  - IMPAIRED HEALING [None]
